FAERS Safety Report 10887044 (Version 1)
Quarter: 2015Q1

REPORT INFORMATION
  Report Type: Spontaneous
  Country: US (occurrence: US)
  Receive Date: 20150304
  Receipt Date: 20150304
  Transmission Date: 20150721
  Serious: No
  Sender: FDA-Public Use
  Company Number: US-PFIZER INC-2015076770

PATIENT
  Sex: Female

DRUGS (6)
  1. FLAGYL [Suspect]
     Active Substance: METRONIDAZOLE\METRONIDAZOLE HYDROCHLORIDE
     Dosage: UNK
  2. AMPICILLIN [Suspect]
     Active Substance: AMPICILLIN
     Dosage: UNK
  3. METROGEL [Suspect]
     Active Substance: METRONIDAZOLE
     Dosage: UNK
  4. TRIMETHOPRIM. [Suspect]
     Active Substance: TRIMETHOPRIM
     Dosage: UNK
  5. FLOXIN [Suspect]
     Active Substance: OFLOXACIN
     Dosage: UNK
  6. BACTRIM [Suspect]
     Active Substance: SULFAMETHOXAZOLE\TRIMETHOPRIM
     Dosage: UNK

REACTIONS (1)
  - Drug hypersensitivity [Unknown]
